FAERS Safety Report 17995657 (Version 10)
Quarter: 2021Q3

REPORT INFORMATION
  Report Type: Spontaneous
  Country: US (occurrence: US)
  Receive Date: 20200708
  Receipt Date: 20210818
  Transmission Date: 20211014
  Serious: Yes (Hospitalization, Other)
  Sender: FDA-Public Use
  Company Number: US-TEVA-2020-US-1799228

PATIENT
  Age: 63 Year
  Sex: Male
  Weight: 124 kg

DRUGS (43)
  1. METFORMIN HCL [Concomitant]
     Active Substance: METFORMIN HYDROCHLORIDE
     Indication: DIABETES MELLITUS
     Dosage: 1000 MG TWICE A DAY
     Dates: start: 20130503, end: 20200313
  2. IBUPROFEN. [Concomitant]
     Active Substance: IBUPROFEN
     Indication: ARTHRITIS
     Dosage: 800MG THRICE A DAY
     Dates: start: 20130503, end: 20170328
  3. BUSPIRONE HCL [Concomitant]
     Active Substance: BUSPIRONE HYDROCHLORIDE
     Indication: ANXIETY
     Dosage: 10MG 3.5 PER DAY
     Dates: start: 20130523, end: 20200322
  4. MECLIZINE HCL [Concomitant]
     Active Substance: MECLIZINE HYDROCHLORIDE
     Indication: DIZZINESS
     Dosage: 25MG THRICE A DAY
     Route: 048
  5. COUMADIN [Concomitant]
     Active Substance: WARFARIN SODIUM
     Dosage: 7.5 MG DAILY EXCEPT 10 MG ON TUESDAYS OR AS DIRECTED
     Route: 048
  6. VALSARTAN SOLCO [Suspect]
     Active Substance: VALSARTAN
     Dosage: DOSAGE : 160 MG
     Dates: start: 20160525, end: 20170320
  7. PRAVASTATIN SODIUM. [Concomitant]
     Active Substance: PRAVASTATIN SODIUM
     Indication: BLOOD CHOLESTEROL INCREASED
     Dosage: 40 MILLIGRAM DAILY;
     Dates: start: 20150727, end: 20161227
  8. ADVAIR DISKUS [Concomitant]
     Active Substance: FLUTICASONE PROPIONATE\SALMETEROL XINAFOATE
     Indication: ASTHMA
     Dosage: 250/50
     Dates: start: 20150706, end: 20190115
  9. MUCINEX [Concomitant]
     Active Substance: GUAIFENESIN
     Dosage: 600 MG TWICE A DAY
     Route: 048
     Dates: start: 20161003, end: 20170207
  10. OMEPRAZOLE. [Concomitant]
     Active Substance: OMEPRAZOLE
     Indication: PROPHYLAXIS
     Dosage: 20.6 MG
     Route: 048
     Dates: end: 20170714
  11. POTASSIUM [Concomitant]
     Active Substance: POTASSIUM
     Indication: HYPOKALAEMIA
     Dosage: 8 MEQ THRICE A DAY
     Dates: start: 20130516, end: 20180420
  12. AMITRIPTYLINE HCL [Concomitant]
     Active Substance: AMITRIPTYLINE
     Indication: NEURALGIA
  13. ASPIRIN. [Concomitant]
     Active Substance: ASPIRIN
     Dosage: 325 MG DAILY
     Route: 048
     Dates: end: 20161003
  14. BENZONATATE. [Concomitant]
     Active Substance: BENZONATATE
     Indication: COUGH
     Dosage: ONE CAPSULE THRICE DAILY AS NEEDED
     Route: 048
  15. CIALIS [Concomitant]
     Active Substance: TADALAFIL
     Dosage: 2.5 MILLIGRAM DAILY;
     Route: 048
  16. NOVOLOG [Concomitant]
     Active Substance: INSULIN ASPART
     Dosage: 100 UNIT/ML, 10?15 UNITS BEFORE BREAKFAST, LUNCH, AND DINNER
     Route: 058
  17. FLUTICASONE PROPIONATE. [Concomitant]
     Active Substance: FLUTICASONE PROPIONATE
     Dosage: 50 MCG/ACT, USE 1 SPRAY IN EACH NOSTRIL DAILY
     Route: 045
  18. CARVEDILOL. [Concomitant]
     Active Substance: CARVEDILOL
     Indication: HYPERTENSION
     Dosage: 25MG TWICE A DAY
     Dates: start: 20130503, end: 20200313
  19. LANTUS [Concomitant]
     Active Substance: INSULIN GLARGINE
     Indication: DIABETES MELLITUS
     Dosage: 100 UNIT/ML VIAL
     Dates: start: 20130503, end: 20180131
  20. DILTIAZEM. [Concomitant]
     Active Substance: DILTIAZEM
     Indication: CHEST PAIN
  21. PRAVASTATIN SODIUM. [Concomitant]
     Active Substance: PRAVASTATIN SODIUM
     Indication: BLOOD TRIGLYCERIDES INCREASED
  22. PROAIR HFA [Concomitant]
     Active Substance: ALBUTEROL SULFATE
     Indication: BRONCHOSPASM
     Dosage: 90 MCG
     Dates: start: 20150419, end: 20180423
  23. VALSARTAN SOLCO [Suspect]
     Active Substance: VALSARTAN
     Indication: HYPERTENSION
     Dosage: DOSAGE : 320MG
     Dates: start: 20170301, end: 20180729
  24. OMEPRAZOLE. [Concomitant]
     Active Substance: OMEPRAZOLE
     Dosage: 40 MILLIGRAM DAILY;
     Dates: start: 20130501, end: 20150531
  25. FENOFIBRATE. [Concomitant]
     Active Substance: FENOFIBRATE
     Indication: BLOOD CHOLESTEROL INCREASED
     Dosage: 160 MILLIGRAM DAILY;
     Dates: start: 20130523, end: 20170108
  26. DOCUSATE SODIUM. [Concomitant]
     Active Substance: DOCUSATE SODIUM
     Dosage: 200 MILLIGRAM DAILY; 100MG TWICE A DAY
     Route: 048
  27. LEVEMIR [Concomitant]
     Active Substance: INSULIN DETEMIR
     Route: 058
  28. VALSARTAN ACTAVIS [Suspect]
     Active Substance: VALSARTAN
     Indication: HYPERTENSION
     Dosage: DOSAGE : 160MG
     Route: 065
     Dates: start: 20160502, end: 20170602
  29. DILTIAZEM. [Concomitant]
     Active Substance: DILTIAZEM
     Indication: HYPERTENSION
     Dosage: 240MG TWICE A DAY
  30. FUROSEMIDE. [Concomitant]
     Active Substance: FUROSEMIDE
     Indication: OEDEMA
  31. KLOR?CON [Concomitant]
     Active Substance: POTASSIUM CHLORIDE
     Indication: HYPOKALAEMIA
     Dosage: 8 MEQ THRICE A DAY
     Dates: start: 20130718, end: 20161219
  32. LOSARTAN POTASSIUM. [Concomitant]
     Active Substance: LOSARTAN POTASSIUM
     Indication: HYPERTENSION
     Dosage: 25 MILLIGRAM DAILY;
     Dates: start: 20141125, end: 20200306
  33. CLARITIN [Concomitant]
     Active Substance: LORATADINE
     Dosage: 10 MILLIGRAM DAILY;
     Route: 048
  34. MECLIZINE HCL [Concomitant]
     Active Substance: MECLIZINE HYDROCHLORIDE
     Dosage: DOSAGE: 50 MG  1 TABLET BID, AS NEEDED
     Route: 048
     Dates: start: 20110704, end: 20110704
  35. VALSARTAN OHM LABORATORIES [Suspect]
     Active Substance: VALSARTAN
     Indication: HYPERTENSION
     Route: 065
  36. HYDRALAZINE [Concomitant]
     Active Substance: HYDRALAZINE HYDROCHLORIDE
     Indication: HYPERTENSION
     Dosage: 25MG 4 TIMES A DAY
     Dates: start: 20130516
  37. FUROSEMIDE. [Concomitant]
     Active Substance: FUROSEMIDE
     Indication: HYPERTENSION
     Dosage: 40MG TWICE A DAY
     Dates: start: 20130516, end: 20200308
  38. ALPRAZOLAM. [Concomitant]
     Active Substance: ALPRAZOLAM
     Indication: ANXIETY
     Dosage: 2 MILLIGRAM DAILY;
     Route: 048
     Dates: start: 20130524, end: 20200227
  39. AMITRIPTYLINE HCL [Concomitant]
     Active Substance: AMITRIPTYLINE
     Indication: DEPRESSION
     Dosage: 50 MILLIGRAM DAILY;
     Dates: start: 20130617, end: 20191014
  40. ADVAIR DISKUS [Concomitant]
     Active Substance: FLUTICASONE PROPIONATE\SALMETEROL XINAFOATE
     Indication: CHRONIC OBSTRUCTIVE PULMONARY DISEASE
  41. SINGULAIR [Concomitant]
     Active Substance: MONTELUKAST SODIUM
     Dosage: 10 MILLIGRAM DAILY; NIGHTLY
     Route: 048
  42. DOXYCYCLINE HYCLATE. [Concomitant]
     Active Substance: DOXYCYCLINE HYCLATE
     Dosage: 100MG TWICE DAILY
     Route: 048
  43. LOVENOX [Concomitant]
     Active Substance: ENOXAPARIN SODIUM
     Dosage: 120 MG/0.8 ML  TWICE DAILY
     Route: 058

REACTIONS (2)
  - Rectal cancer [Unknown]
  - Iron deficiency anaemia [Recovered/Resolved]

NARRATIVE: CASE EVENT DATE: 201803
